FAERS Safety Report 24978204 (Version 1)
Quarter: 2025Q1

REPORT INFORMATION
  Report Type: Spontaneous
  Country: JP (occurrence: JP)
  Receive Date: 20250217
  Receipt Date: 20250217
  Transmission Date: 20250408
  Serious: Yes (Life-Threatening, Hospitalization, Other)
  Sender: PFIZER
  Company Number: JP-ASTELLAS-2024-AER-020722

PATIENT
  Age: 8 Decade
  Sex: Male

DRUGS (6)
  1. PADCEV [Suspect]
     Active Substance: ENFORTUMAB VEDOTIN-EJFV
     Route: 065
  2. METRONIDAZOLE [Suspect]
     Active Substance: METRONIDAZOLE
     Indication: Febrile neutropenia
     Route: 065
     Dates: end: 20241130
  3. KEYTRUDA [Suspect]
     Active Substance: PEMBROLIZUMAB
     Route: 065
  4. VANCOMYCIN [Suspect]
     Active Substance: VANCOMYCIN
     Indication: Febrile neutropenia
     Route: 065
     Dates: start: 202411
  5. LASCUFLOXACIN [Suspect]
     Active Substance: LASCUFLOXACIN
     Indication: Febrile neutropenia
     Route: 065
     Dates: end: 20241202
  6. FILGRASTIM [Concomitant]
     Active Substance: FILGRASTIM
     Indication: Febrile neutropenia
     Route: 065
     Dates: start: 202411

REACTIONS (3)
  - Febrile neutropenia [Recovered/Resolved]
  - Epilepsy [Recovered/Resolved]
  - Altered state of consciousness [Recovered/Resolved]

NARRATIVE: CASE EVENT DATE: 20241121
